FAERS Safety Report 24303606 (Version 1)
Quarter: 2024Q3

REPORT INFORMATION
  Report Type: Report from Study
  Country: BE (occurrence: BE)
  Receive Date: 20240910
  Receipt Date: 20240910
  Transmission Date: 20241016
  Serious: Yes (Hospitalization, Other)
  Sender: MYLAN
  Company Number: None

PATIENT
  Age: 71 Year
  Sex: Male
  Weight: 81.7 kg

DRUGS (5)
  1. TACROLIMUS [Suspect]
     Active Substance: TACROLIMUS
     Indication: Renal transplant
     Dosage: 6 MILLIGRAM
     Route: 048
     Dates: start: 20150416
  2. CELLCEPT [Suspect]
     Active Substance: MYCOPHENOLATE MOFETIL
     Indication: Renal transplant
     Dosage: 750 MILLIGRAM
     Route: 065
     Dates: start: 20150416
  3. MEDROL [Suspect]
     Active Substance: METHYLPREDNISOLONE
     Indication: Renal transplant
     Dosage: 10 MILLIGRAM, QD
     Route: 048
     Dates: start: 20150417
  4. PREDNISOLONE [Suspect]
     Active Substance: PREDNISOLONE
     Indication: Renal transplant
     Dosage: 10 MILLIGRAM, QD
     Route: 048
     Dates: start: 20150417
  5. VALCYTE [Concomitant]
     Active Substance: VALGANCICLOVIR HYDROCHLORIDE
     Indication: Antiviral prophylaxis
     Dosage: 450 MILLIGRAM, BID
     Route: 048
     Dates: start: 20150416

REACTIONS (7)
  - Subcapsular renal haematoma [Recovered/Resolved]
  - Prostatitis [Recovered/Resolved]
  - Urosepsis [Recovered/Resolved]
  - Escherichia infection [Recovered/Resolved]
  - Pyrexia [Recovered/Resolved]
  - Escherichia urinary tract infection [Recovered/Resolved]
  - Pyuria [Recovered/Resolved]

NARRATIVE: CASE EVENT DATE: 20150419
